FAERS Safety Report 9117204 (Version 1)
Quarter: 2013Q1

REPORT INFORMATION
  Report Type: Spontaneous
  Country: US (occurrence: US)
  Receive Date: 20130208
  Receipt Date: 20130208
  Transmission Date: 20140127
  Serious: Yes (Life-Threatening, Hospitalization)
  Sender: FDA-Public Use
  Company Number: US-ASTRAZENECA-2013SE08105

PATIENT
  Age: 43 Year
  Sex: Female
  Weight: 110.7 kg

DRUGS (19)
  1. SEROQUEL [Suspect]
     Route: 048
  2. PRIMATENE [Suspect]
     Indication: ASTHMA
     Dosage: 1-2 TABLETS FOURS TIMES A DAY
     Route: 048
     Dates: start: 1975, end: 1999
  3. PRIMATENE [Suspect]
     Indication: ASTHMA
     Dosage: 25/400 MG, FOUR TIMES A DAY
     Route: 048
  4. BRONKAID [Suspect]
     Indication: ASTHMA
     Dosage: (3 TABLETS TOGETHER) DAILY
     Route: 048
  5. ADVAIR [Suspect]
     Indication: NASOPHARYNGITIS
     Route: 065
  6. HALDOL [Suspect]
     Route: 065
  7. ATIVAN [Suspect]
     Route: 065
  8. METHYLPREDNISOLONE [Suspect]
     Route: 065
  9. DEXAMETHASONE [Suspect]
     Route: 065
  10. PREDNISONE [Suspect]
     Route: 065
  11. COLLOIDAL SILVER [Suspect]
     Indication: ILL-DEFINED DISORDER
     Route: 065
  12. SINGULAIR [Concomitant]
     Indication: HOUSE DUST ALLERGY
  13. METFORMIN [Concomitant]
     Indication: BLOOD GLUCOSE INCREASED
  14. NASALCROM [Concomitant]
  15. GLYBURIDE [Concomitant]
  16. SYNTHROID [Concomitant]
  17. ALEVE [Concomitant]
     Indication: BACK DISORDER
  18. GLIMEPIRIDE [Concomitant]
     Indication: BLOOD GLUCOSE INCREASED
  19. LASIX [Concomitant]
     Indication: OEDEMA

REACTIONS (12)
  - Generalised oedema [Unknown]
  - Cellulitis [Unknown]
  - Localised oedema [Unknown]
  - Localised infection [Unknown]
  - Increased upper airway secretion [Not Recovered/Not Resolved]
  - Cough [Not Recovered/Not Resolved]
  - Diabetes mellitus [Unknown]
  - Adverse event [Not Recovered/Not Resolved]
  - Feeling abnormal [Unknown]
  - Nervousness [Not Recovered/Not Resolved]
  - Rhinorrhoea [Not Recovered/Not Resolved]
  - Dizziness [Unknown]
